FAERS Safety Report 14313047 (Version 3)
Quarter: 2018Q2

REPORT INFORMATION
  Report Type: Spontaneous
  Country: US (occurrence: US)
  Receive Date: 20171221
  Receipt Date: 20180515
  Transmission Date: 20180711
  Serious: No
  Sender: FDA-Public Use
  Company Number: US-PFIZER INC-2017540063

PATIENT
  Age: 55 Year
  Sex: Female
  Weight: 90 kg

DRUGS (7)
  1. DOCETAXEL. [Suspect]
     Active Substance: DOCETAXEL
     Dosage: 169.5 MG EVERY THREE WEEKS (4 CYCLES)
     Dates: start: 20100819, end: 20101021
  2. METOPROLOL. [Concomitant]
     Active Substance: METOPROLOL
     Dosage: 100 MG, UNK
  3. TAXOTERE [Suspect]
     Active Substance: DOCETAXEL
     Indication: BREAST CANCER
     Dosage: UNK
     Dates: start: 20100819, end: 201012
  4. NEOSAR [Concomitant]
     Active Substance: CYCLOPHOSPHAMIDE
     Indication: CHEMOTHERAPY
     Dosage: UNK
  5. DOCETAXEL. [Suspect]
     Active Substance: DOCETAXEL
     Indication: BREAST CANCER
     Dosage: UNK
     Dates: start: 20100819, end: 201012
  6. TAXOTERE [Suspect]
     Active Substance: DOCETAXEL
     Dosage: 169.5 MG EVERY THREE WEEKS (4 CYCLES)
     Dates: start: 20100819, end: 20101021
  7. CYTOXAN [Concomitant]
     Active Substance: CYCLOPHOSPHAMIDE
     Dosage: UNK

REACTIONS (2)
  - Madarosis [Not Recovered/Not Resolved]
  - Alopecia [Not Recovered/Not Resolved]

NARRATIVE: CASE EVENT DATE: 2010
